FAERS Safety Report 5257003-7 (Version None)
Quarter: 2007Q1

REPORT INFORMATION
  Report Type: 
  Country: None (occurrence: None)
  Receive Date: 20070305
  Receipt Date: 20070305
  Transmission Date: 20070707
  Serious: No
  Sender: FDA-Public Use
  Company Number: None

PATIENT
  Age: 56 Year
  Sex: Male
  Weight: 83.9154 kg

DRUGS (2)
  1. REMICADE [Suspect]
     Indication: RHEUMATOID ARTHRITIS
     Dosage: 2.5 MG EVERY 8 WIKS IV DRIP
     Route: 041
     Dates: start: 20040115, end: 20040415
  2. REMICADE [Suspect]
     Dosage: 5 MG EVERY 8 WKS IV DRIP
     Route: 041
     Dates: start: 20040615, end: 20040615

REACTIONS (7)
  - ACTIVITIES OF DAILY LIVING IMPAIRED [None]
  - ARTHRALGIA [None]
  - ASTHENIA [None]
  - BURNING SENSATION [None]
  - CHRONIC INFLAMMATORY DEMYELINATING POLYRADICULONEUROPATHY [None]
  - HYPOAESTHESIA [None]
  - PAIN IN EXTREMITY [None]
